FAERS Safety Report 10089158 (Version 1)
Quarter: 2014Q2

REPORT INFORMATION
  Report Type: Spontaneous
  Country: US (occurrence: None)
  Receive Date: 20140418
  Receipt Date: 20140418
  Transmission Date: 20141212
  Serious: No
  Sender: FDA-Public Use
  Company Number: None

PATIENT
  Age: 7 Year
  Sex: Male
  Weight: 15.88 kg

DRUGS (2)
  1. CHILDRENS ACETAMINOPHEN [Suspect]
     Indication: PAIN
     Dates: start: 20140402, end: 20140416
  2. CHILDRENS ACETAMINOPHEN [Suspect]
     Indication: PYREXIA
     Dates: start: 20140402, end: 20140416

REACTIONS (3)
  - Self-medication [None]
  - Failure of child resistant mechanism for pharmaceutical product [None]
  - Accidental exposure to product by child [None]
